FAERS Safety Report 9843149 (Version 1)
Quarter: 2014Q1

REPORT INFORMATION
  Report Type: Report from Study
  Country: US (occurrence: US)
  Receive Date: 20140124
  Receipt Date: 20140124
  Transmission Date: 20141002
  Serious: Yes (Hospitalization, Other)
  Sender: FDA-Public Use
  Company Number: US-ABBVIE-14P-163-1191458-00

PATIENT
  Sex: Female

DRUGS (11)
  1. HUMIRA [Suspect]
     Indication: CROHN^S DISEASE
     Dates: start: 201210
  2. HUMIRA [Suspect]
     Dates: start: 201307
  3. HUMIRA [Suspect]
     Dosage: ON DAY 15
  4. HUMIRA [Suspect]
  5. OMEPRAZOLE [Concomitant]
     Indication: PRODUCT USED FOR UNKNOWN INDICATION
  6. IRON [Concomitant]
     Indication: PRODUCT USED FOR UNKNOWN INDICATION
  7. SERTRALINE [Concomitant]
     Indication: PRODUCT USED FOR UNKNOWN INDICATION
  8. AZATHIOPRINE [Concomitant]
     Indication: PRODUCT USED FOR UNKNOWN INDICATION
  9. WARFARIN [Concomitant]
     Indication: PRODUCT USED FOR UNKNOWN INDICATION
     Dosage: 1.5 TABLETS ON MONDAY, FRIDAY AND 2 TABLETS REST OF DAYS
  10. VITAMIN D3 [Concomitant]
     Indication: PRODUCT USED FOR UNKNOWN INDICATION
  11. ZOLPIDEM [Concomitant]
     Indication: PRODUCT USED FOR UNKNOWN INDICATION
     Dosage: AT BEDTIME

REACTIONS (27)
  - Asthenia [Recovered/Resolved]
  - General physical health deterioration [Recovering/Resolving]
  - Crohn^s disease [Recovering/Resolving]
  - Haematochezia [Recovered/Resolved]
  - Infection [Not Recovered/Not Resolved]
  - Pneumonia [Recovered/Resolved]
  - Sepsis [Recovered/Resolved]
  - Anaemia [Recovered/Resolved]
  - Urinary tract infection [Recovered/Resolved]
  - Ingrowing nail [Recovering/Resolving]
  - Pain in extremity [Recovered/Resolved]
  - Clostridium difficile infection [Unknown]
  - Influenza [Recovered/Resolved]
  - Nausea [Recovered/Resolved]
  - Oropharyngeal pain [Recovered/Resolved]
  - Cough [Recovered/Resolved]
  - Pain [Recovered/Resolved]
  - Activities of daily living impaired [Recovered/Resolved]
  - Tooth disorder [Unknown]
  - Dental caries [Unknown]
  - Hair growth abnormal [Unknown]
  - Alopecia [Unknown]
  - Dental caries [Not Recovered/Not Resolved]
  - Wrong technique in drug usage process [Unknown]
  - Drug dose omission [Unknown]
  - Insomnia [Not Recovered/Not Resolved]
  - Injection site pain [Not Recovered/Not Resolved]
